FAERS Safety Report 8170744-7 (Version None)
Quarter: 2012Q1

REPORT INFORMATION
  Report Type: 
  Country: None (occurrence: None)
  Receive Date: 20120104
  Receipt Date: 20111116
  Transmission Date: 20120608
  Serious: No
  Sender: FDA-Public Use
  Company Number: 2011HGS-002821

PATIENT
  Age: 26 Year
  Sex: Female
  Weight: 64.8644 kg

DRUGS (4)
  1. METHOTREXATE [Concomitant]
  2. FOLIC ACID [Concomitant]
  3. BENLYSTA [Suspect]
     Indication: SYSTEMIC LUPUS ERYTHEMATOSUS
     Dosage: 10 MG/KG, 1 IN 28 D, INTRAVENOUS DRIP
     Route: 041
     Dates: start: 20111019
  4. PLAQUENIL [Concomitant]

REACTIONS (1)
  - FATIGUE [None]
